FAERS Safety Report 8200495-1 (Version None)
Quarter: 2012Q1

REPORT INFORMATION
  Report Type: 
  Country: None (occurrence: None)
  Receive Date: 20120309
  Receipt Date: 20120309
  Transmission Date: 20120608
  Serious: Yes (Hospitalization)
  Sender: FDA-Public Use
  Company Number: None

PATIENT
  Age: 71 Year
  Sex: Male
  Weight: 58.5 kg

DRUGS (2)
  1. OXYCODONE HCL [Suspect]
     Indication: PAIN
     Dosage: MG PO
     Route: 048
     Dates: start: 20111102, end: 20120113
  2. CHLORPROMAZINE HCL [Suspect]
     Dosage: MG PO
     Route: 048
     Dates: start: 20111114

REACTIONS (5)
  - ASTHENIA [None]
  - NO THERAPEUTIC RESPONSE [None]
  - PAIN [None]
  - FAECALOMA [None]
  - CONSTIPATION [None]
